FAERS Safety Report 16500021 (Version 1)
Quarter: 2019Q3

REPORT INFORMATION
  Report Type: Other
  Country: TN (occurrence: TN)
  Receive Date: 20190701
  Receipt Date: 20190701
  Transmission Date: 20191004
  Serious: Yes (Other)
  Sender: FDA-Public Use
  Company Number: TN-FDC LIMITED-2070078

PATIENT
  Age: 17 Year
  Sex: Male

DRUGS (2)
  1. CIPROFLOXACIN. [Suspect]
     Active Substance: CIPROFLOXACIN
     Indication: PNEUMONIA
     Route: 065
     Dates: start: 2012
  2. METHOTREXATE. [Interacting]
     Active Substance: METHOTREXATE
     Route: 065
     Dates: start: 201202

REACTIONS (3)
  - Drug interaction [Recovered/Resolved]
  - Tubulointerstitial nephritis [Recovered/Resolved]
  - Toxicity to various agents [Recovered/Resolved]
